FAERS Safety Report 18445764 (Version 2)
Quarter: 2020Q4

REPORT INFORMATION
  Report Type: Spontaneous
  Country: US (occurrence: US)
  Receive Date: 20201030
  Receipt Date: 20201118
  Transmission Date: 20210114
  Serious: Yes (Other)
  Sender: FDA-Public Use
  Company Number: US-PMX02-US-PMX02-20-00017

PATIENT
  Age: 45 Year
  Sex: Male
  Weight: 107.5 kg

DRUGS (2)
  1. LAMOTRIGINE. [Concomitant]
     Active Substance: LAMOTRIGINE
     Indication: SEIZURE
  2. ARIDOL [Suspect]
     Active Substance: MANNITOL
     Indication: PULMONARY FUNCTION CHALLENGE TEST
     Route: 055
     Dates: start: 20201015, end: 20201015

REACTIONS (2)
  - Unresponsive to stimuli [Recovered/Resolved]
  - Seizure [Recovered/Resolved]

NARRATIVE: CASE EVENT DATE: 20201015
